FAERS Safety Report 12457122 (Version 2)
Quarter: 2016Q3

REPORT INFORMATION
  Report Type: Spontaneous
  Country: DE (occurrence: DE)
  Receive Date: 20160610
  Receipt Date: 20160809
  Transmission Date: 20161109
  Serious: Yes (Hospitalization, Other)
  Sender: FDA-Public Use
  Company Number: DE-SUNOVION-2016SUN001375

PATIENT

DRUGS (4)
  1. ERGENYL CHRONO [Concomitant]
     Active Substance: VALPROIC ACID
     Dosage: 500 (2-0-2)
     Dates: start: 20151105
  2. ZEBINIX [Suspect]
     Active Substance: ESLICARBAZEPINE ACETATE
     Indication: EPILEPSY
     Dosage: 1200 MG, DAILY
     Route: 048
     Dates: start: 20160414, end: 20160509
  3. ERGENYL CHRONO [Concomitant]
     Active Substance: VALPROIC ACID
     Indication: EPILEPSY
     Dosage: 4 DF DAILY (2-0-2)
     Dates: start: 20151105
  4. ZEBINIX [Suspect]
     Active Substance: ESLICARBAZEPINE ACETATE
     Dosage: 800 MG, DAILY
     Route: 048
     Dates: start: 20160509

REACTIONS (6)
  - Pneumonia [Recovered/Resolved]
  - Disturbance in attention [Recovered/Resolved]
  - Epilepsy [Recovered/Resolved]
  - Drug dose titration not performed [Unknown]
  - Dehydration [Recovered/Resolved]
  - Hyponatraemia [Recovered/Resolved]

NARRATIVE: CASE EVENT DATE: 20160414
